FAERS Safety Report 16586937 (Version 1)
Quarter: 2019Q3

REPORT INFORMATION
  Report Type: Spontaneous
  Country: US (occurrence: US)
  Receive Date: 20190717
  Receipt Date: 20190717
  Transmission Date: 20191004
  Serious: Yes (Other)
  Sender: FDA-Public Use
  Company Number: US-SA-2019SA188301

PATIENT
  Age: 71 Year
  Sex: Female

DRUGS (2)
  1. FERRLECIT [Suspect]
     Active Substance: SODIUM FERRIC GLUCONATE COMPLEX
     Dosage: UNK
  2. FERRLECIT [Suspect]
     Active Substance: SODIUM FERRIC GLUCONATE COMPLEX
     Indication: MINERAL SUPPLEMENTATION
     Dosage: 125 MG INFUSED OVER ONE HOUR
     Dates: start: 20190708, end: 20190708

REACTIONS (1)
  - Circulatory collapse [Unknown]

NARRATIVE: CASE EVENT DATE: 20190708
